FAERS Safety Report 26172096 (Version 1)
Quarter: 2025Q4

REPORT INFORMATION
  Report Type: Spontaneous
  Country: CA (occurrence: CA)
  Receive Date: 20251218
  Receipt Date: 20251218
  Transmission Date: 20260117
  Serious: Yes (Death, Life-Threatening, Hospitalization, Disabling, Other)
  Sender: Haleon PLC
  Company Number: CA-HALEON-2279279

PATIENT
  Age: 44 Year
  Sex: Female

DRUGS (416)
  1. DICLOFENAC [Suspect]
     Active Substance: DICLOFENAC
     Indication: Product used for unknown indication
     Dosage: ROA: OPHTHALMIC
  2. ALENDRONATE SODIUM [Suspect]
     Active Substance: ALENDRONATE SODIUM
     Indication: Rheumatoid arthritis
  3. ALENDRONATE SODIUM [Suspect]
     Active Substance: ALENDRONATE SODIUM
     Indication: Product used for unknown indication
  4. ALENDRONATE SODIUM [Suspect]
     Active Substance: ALENDRONATE SODIUM
  5. ALENDRONATE SODIUM [Suspect]
     Active Substance: ALENDRONATE SODIUM
  6. ALENDRONATE SODIUM [Suspect]
     Active Substance: ALENDRONATE SODIUM
  7. ALENDRONATE SODIUM [Suspect]
     Active Substance: ALENDRONATE SODIUM
  8. PREDNISONE [Suspect]
     Active Substance: PREDNISONE
     Indication: Systemic lupus erythematosus
  9. PREDNISONE [Suspect]
     Active Substance: PREDNISONE
     Indication: Synovitis
  10. PREDNISONE [Suspect]
     Active Substance: PREDNISONE
     Indication: Rheumatoid arthritis
  11. PREDNISONE [Suspect]
     Active Substance: PREDNISONE
     Indication: Psoriatic arthropathy
  12. PREDNISONE [Suspect]
     Active Substance: PREDNISONE
     Indication: Pemphigus
  13. PREDNISONE [Suspect]
     Active Substance: PREDNISONE
     Indication: Inflammation
  14. PREDNISONE [Suspect]
     Active Substance: PREDNISONE
     Indication: Bursitis
  15. PREDNISONE [Suspect]
     Active Substance: PREDNISONE
  16. APREPITANT [Suspect]
     Active Substance: APREPITANT
     Indication: Product used for unknown indication
  17. APREPITANT [Suspect]
     Active Substance: APREPITANT
  18. APREPITANT [Suspect]
     Active Substance: APREPITANT
  19. APREPITANT [Suspect]
     Active Substance: APREPITANT
  20. ARAVA [Suspect]
     Active Substance: LEFLUNOMIDE
     Indication: Product used for unknown indication
  21. ARAVA [Suspect]
     Active Substance: LEFLUNOMIDE
  22. ARAVA [Suspect]
     Active Substance: LEFLUNOMIDE
  23. ARAVA [Suspect]
     Active Substance: LEFLUNOMIDE
  24. ARAVA [Suspect]
     Active Substance: LEFLUNOMIDE
  25. ARAVA [Suspect]
     Active Substance: LEFLUNOMIDE
  26. ARAVA [Suspect]
     Active Substance: LEFLUNOMIDE
  27. ARAVA [Suspect]
     Active Substance: LEFLUNOMIDE
  28. ARAVA [Suspect]
     Active Substance: LEFLUNOMIDE
  29. ARAVA [Suspect]
     Active Substance: LEFLUNOMIDE
  30. ASACOL [Suspect]
     Active Substance: MESALAMINE
     Indication: Product used for unknown indication
  31. BORAGE OIL [Suspect]
     Active Substance: BORAGE OIL
     Indication: Product used for unknown indication
  32. CALCIUM GLUCONATE [Suspect]
     Active Substance: CALCIUM GLUCONATE
     Indication: Product used for unknown indication
  33. CELEBREX [Suspect]
     Active Substance: CELECOXIB
     Indication: Product used for unknown indication
  34. CELEBREX [Suspect]
     Active Substance: CELECOXIB
  35. CELECOXIB [Suspect]
     Active Substance: CELECOXIB
     Indication: Product used for unknown indication
  36. CELECOXIB [Suspect]
     Active Substance: CELECOXIB
  37. CELECOXIB [Suspect]
     Active Substance: CELECOXIB
  38. CERTOLIZUMAB PEGOL [Suspect]
     Active Substance: CERTOLIZUMAB PEGOL
     Indication: Product used for unknown indication
  39. CETIRIZINE [Suspect]
     Active Substance: CETIRIZINE HYDROCHLORIDE
     Indication: Rheumatoid arthritis
  40. CETIRIZINE [Suspect]
     Active Substance: CETIRIZINE HYDROCHLORIDE
  41. CETIRIZINE [Suspect]
     Active Substance: CETIRIZINE HYDROCHLORIDE
  42. CETIRIZINE [Suspect]
     Active Substance: CETIRIZINE HYDROCHLORIDE
  43. CETIRIZINE [Suspect]
     Active Substance: CETIRIZINE HYDROCHLORIDE
  44. CETIRIZINE [Suspect]
     Active Substance: CETIRIZINE HYDROCHLORIDE
  45. CETIRIZINE [Suspect]
     Active Substance: CETIRIZINE HYDROCHLORIDE
     Indication: Rheumatoid arthritis
  46. CETIRIZINE HYDROCHLORIDE [Suspect]
     Active Substance: CETIRIZINE HYDROCHLORIDE
     Indication: Rheumatoid arthritis
  47. CETIRIZINE HYDROCHLORIDE [Suspect]
     Active Substance: CETIRIZINE HYDROCHLORIDE
  48. CETIRIZINE HYDROCHLORIDE [Suspect]
     Active Substance: CETIRIZINE HYDROCHLORIDE
  49. CETIRIZINE HYDROCHLORIDE [Suspect]
     Active Substance: CETIRIZINE HYDROCHLORIDE
  50. CETIRIZINE HYDROCHLORIDE [Suspect]
     Active Substance: CETIRIZINE HYDROCHLORIDE
  51. CETIRIZINE HYDROCHLORIDE [Suspect]
     Active Substance: CETIRIZINE HYDROCHLORIDE
  52. CETIRIZINE HYDROCHLORIDE [Suspect]
     Active Substance: CETIRIZINE HYDROCHLORIDE
  53. CETIRIZINE HYDROCHLORIDE [Suspect]
     Active Substance: CETIRIZINE HYDROCHLORIDE
  54. CETIRIZINE HYDROCHLORIDE [Suspect]
     Active Substance: CETIRIZINE HYDROCHLORIDE
  55. CETIRIZINE HYDROCHLORIDE [Suspect]
     Active Substance: CETIRIZINE HYDROCHLORIDE
  56. CETIRIZINE HYDROCHLORIDE [Suspect]
     Active Substance: CETIRIZINE HYDROCHLORIDE
  57. CETIRIZINE HYDROCHLORIDE [Suspect]
     Active Substance: CETIRIZINE HYDROCHLORIDE
  58. CETIRIZINE HYDROCHLORIDE [Suspect]
     Active Substance: CETIRIZINE HYDROCHLORIDE
  59. CETIRIZINE HYDROCHLORIDE [Suspect]
     Active Substance: CETIRIZINE HYDROCHLORIDE
  60. CETIRIZINE HYDROCHLORIDE [Suspect]
     Active Substance: CETIRIZINE HYDROCHLORIDE
  61. CETIRIZINE HYDROCHLORIDE [Suspect]
     Active Substance: CETIRIZINE HYDROCHLORIDE
  62. CETIRIZINE HYDROCHLORIDE [Suspect]
     Active Substance: CETIRIZINE HYDROCHLORIDE
  63. CETIRIZINE HYDROCHLORIDE [Suspect]
     Active Substance: CETIRIZINE HYDROCHLORIDE
  64. CETIRIZINE HYDROCHLORIDE [Suspect]
     Active Substance: CETIRIZINE HYDROCHLORIDE
  65. CETIRIZINE HYDROCHLORIDE [Suspect]
     Active Substance: CETIRIZINE HYDROCHLORIDE
  66. CETIRIZINE HYDROCHLORIDE [Suspect]
     Active Substance: CETIRIZINE HYDROCHLORIDE
  67. CETIRIZINE HYDROCHLORIDE [Suspect]
     Active Substance: CETIRIZINE HYDROCHLORIDE
  68. CETIRIZINE HYDROCHLORIDE [Suspect]
     Active Substance: CETIRIZINE HYDROCHLORIDE
  69. CETIRIZINE HYDROCHLORIDE [Suspect]
     Active Substance: CETIRIZINE HYDROCHLORIDE
  70. CETIRIZINE HYDROCHLORIDE [Suspect]
     Active Substance: CETIRIZINE HYDROCHLORIDE
  71. CETIRIZINE HYDROCHLORIDE [Suspect]
     Active Substance: CETIRIZINE HYDROCHLORIDE
  72. CETIRIZINE HYDROCHLORIDE [Suspect]
     Active Substance: CETIRIZINE HYDROCHLORIDE
     Indication: Rheumatoid arthritis
  73. CETRIMIDE [Suspect]
     Active Substance: CETRIMIDE
     Indication: Product used for unknown indication
  74. CETRIMIDE [Suspect]
     Active Substance: CETRIMIDE
  75. CETRIMIDE [Suspect]
     Active Substance: CETRIMIDE
  76. CETRIMIDE [Suspect]
     Active Substance: CETRIMIDE
  77. CETRIMIDE [Suspect]
     Active Substance: CETRIMIDE
  78. CETRIMIDE [Suspect]
     Active Substance: CETRIMIDE
  79. CETRIMIDE [Suspect]
     Active Substance: CETRIMIDE
  80. CHLORAPREP [Suspect]
     Active Substance: CHLORHEXIDINE GLUCONATE\ISOPROPYL ALCOHOL
     Indication: Product used for unknown indication
     Dosage: DOSE FORM: SOLUTION, ROA: TOPICAL
  81. CHLORHEXIDINE [Suspect]
     Active Substance: CHLORHEXIDINE
     Indication: Product used for unknown indication
  82. CHLORHEXIDINE [Suspect]
     Active Substance: CHLORHEXIDINE
     Dosage: ROA: TOPICAL
  83. CHLORHEXIDINE [Suspect]
     Active Substance: CHLORHEXIDINE
  84. CHOLECALCIFEROL [Suspect]
     Active Substance: CHOLECALCIFEROL
     Indication: Product used for unknown indication
  85. CIMZIA [Suspect]
     Active Substance: CERTOLIZUMAB PEGOL
     Indication: Rheumatoid arthritis
  86. CIMZIA [Suspect]
     Active Substance: CERTOLIZUMAB PEGOL
     Indication: Psoriatic arthropathy
  87. CIMZIA [Suspect]
     Active Substance: CERTOLIZUMAB PEGOL
     Indication: Psoriasis
     Dosage: ROA: SUBCUTANEOUS
  88. CIMZIA [Suspect]
     Active Substance: CERTOLIZUMAB PEGOL
     Dosage: ROA: SUBCUTANEOUS
  89. CIMZIA [Suspect]
     Active Substance: CERTOLIZUMAB PEGOL
     Dosage: ROA: SUBCUTANEOUS
  90. CIMZIA [Suspect]
     Active Substance: CERTOLIZUMAB PEGOL
     Dosage: ROA: SUBCUTANEOUS
  91. CIMZIA [Suspect]
     Active Substance: CERTOLIZUMAB PEGOL
     Dosage: ROA: SUBCUTANEOUS
  92. COSENTYX [Suspect]
     Active Substance: SECUKINUMAB
     Indication: Rheumatoid arthritis
  93. COSENTYX [Suspect]
     Active Substance: SECUKINUMAB
     Indication: Rheumatoid arthritis
  94. DESOXIMETASONE [Suspect]
     Active Substance: DESOXIMETASONE
     Indication: Rheumatoid arthritis
     Dosage: ROA: OTHER
  95. DESOXIMETASONE [Suspect]
     Active Substance: DESOXIMETASONE
  96. DESOXIMETASONE [Suspect]
     Active Substance: DESOXIMETASONE
  97. DESOXIMETASONE [Suspect]
     Active Substance: DESOXIMETASONE
     Dosage: ROA: SUBCUTANEOUS
  98. DESOXIMETASONE [Suspect]
     Active Substance: DESOXIMETASONE
     Dosage: ROA: SUBCUTANEOUS
  99. DESOXIMETASONE [Suspect]
     Active Substance: DESOXIMETASONE
     Dosage: ROA: TOPICAL
  100. DESOXIMETASONE [Suspect]
     Active Substance: DESOXIMETASONE
     Dosage: ROA: SUBCUTANEOUS
  101. DESOXIMETASONE [Suspect]
     Active Substance: DESOXIMETASONE
     Indication: Rheumatoid arthritis
  102. DILTIAZEM [Suspect]
     Active Substance: DILTIAZEM
     Indication: Product used for unknown indication
  103. DILTIAZEM [Suspect]
     Active Substance: DILTIAZEM
  104. DOXYCYCLINE HYCLATE [Suspect]
     Active Substance: DOXYCYCLINE HYCLATE
     Indication: Product used for unknown indication
  105. ENBREL [Suspect]
     Active Substance: ETANERCEPT
     Indication: Rheumatoid arthritis
     Dosage: ROA: SUBCUTANEOUS
  106. ENBREL [Suspect]
     Active Substance: ETANERCEPT
     Indication: Psoriatic arthropathy
     Dosage: ROA: SUBCUTANEOUS
  107. ENBREL [Suspect]
     Active Substance: ETANERCEPT
     Dosage: ROA: SUBCUTANEOUS
  108. ENBREL [Suspect]
     Active Substance: ETANERCEPT
     Dosage: ROA: SUBCUTANEOUS
  109. ENBREL [Suspect]
     Active Substance: ETANERCEPT
     Dosage: ROA: SUBCUTANEOUS
  110. ENBREL [Suspect]
     Active Substance: ETANERCEPT
     Dosage: ROA: SUBCUTANEOUS
  111. ENTYVIO [Suspect]
     Active Substance: VEDOLIZUMAB
     Indication: Product used for unknown indication
  112. ERELZI [Suspect]
     Active Substance: ETANERCEPT-SZZS
     Indication: Rheumatoid arthritis
     Dosage: ROA: SUBCUTANEOUS
  113. ERELZI [Suspect]
     Active Substance: ETANERCEPT-SZZS
     Dosage: ROA: SUBCUTANEOUS
  114. FLUMETHASONE PIVALATE [Suspect]
     Active Substance: FLUMETHASONE PIVALATE
     Indication: Rheumatoid arthritis
  115. FLUMETHASONE PIVALATE [Suspect]
     Active Substance: FLUMETHASONE PIVALATE
  116. FLUMETHASONE PIVALATE [Suspect]
     Active Substance: FLUMETHASONE PIVALATE
  117. FLUMETHASONE PIVALATE [Suspect]
     Active Substance: FLUMETHASONE PIVALATE
  118. FLUMETHASONE PIVALATE [Suspect]
     Active Substance: FLUMETHASONE PIVALATE
  119. FLUMETHASONE PIVALATE [Suspect]
     Active Substance: FLUMETHASONE PIVALATE
  120. FLUMETHASONE PIVALATE [Suspect]
     Active Substance: FLUMETHASONE PIVALATE
  121. FLUMETHASONE PIVALATE [Suspect]
     Active Substance: FLUMETHASONE PIVALATE
  122. FLUMETHASONE PIVALATE [Suspect]
     Active Substance: FLUMETHASONE PIVALATE
  123. FLUMETHASONE PIVALATE [Suspect]
     Active Substance: FLUMETHASONE PIVALATE
  124. FLUMETHASONE PIVALATE [Suspect]
     Active Substance: FLUMETHASONE PIVALATE
  125. FLUMETHASONE PIVALATE [Suspect]
     Active Substance: FLUMETHASONE PIVALATE
  126. FLUMETHASONE PIVALATE [Suspect]
     Active Substance: FLUMETHASONE PIVALATE
  127. FLUMETHASONE PIVALATE [Suspect]
     Active Substance: FLUMETHASONE PIVALATE
  128. FLUMETHASONE PIVALATE [Suspect]
     Active Substance: FLUMETHASONE PIVALATE
  129. FLUMETHASONE PIVALATE [Suspect]
     Active Substance: FLUMETHASONE PIVALATE
     Indication: Rheumatoid arthritis
  130. FOLIC ACID [Suspect]
     Active Substance: FOLIC ACID
     Indication: Rheumatoid arthritis
  131. FOLIC ACID [Suspect]
     Active Substance: FOLIC ACID
  132. FOLIC ACID [Suspect]
     Active Substance: FOLIC ACID
  133. FOLIC ACID [Suspect]
     Active Substance: FOLIC ACID
  134. FOLIC ACID [Suspect]
     Active Substance: FOLIC ACID
  135. FOLIC ACID [Suspect]
     Active Substance: FOLIC ACID
  136. FOLIC ACID [Suspect]
     Active Substance: FOLIC ACID
  137. FOLIC ACID [Suspect]
     Active Substance: FOLIC ACID
  138. FOLIC ACID [Suspect]
     Active Substance: FOLIC ACID
  139. FOLIC ACID [Suspect]
     Active Substance: FOLIC ACID
  140. FOLIC ACID [Suspect]
     Active Substance: FOLIC ACID
  141. FOLIC ACID [Suspect]
     Active Substance: FOLIC ACID
  142. FOLIC ACID [Suspect]
     Active Substance: FOLIC ACID
  143. FOLIC ACID [Suspect]
     Active Substance: FOLIC ACID
  144. FOLIC ACID [Suspect]
     Active Substance: FOLIC ACID
  145. FOLIC ACID [Suspect]
     Active Substance: FOLIC ACID
  146. FOLIC ACID [Suspect]
     Active Substance: FOLIC ACID
     Indication: Rheumatoid arthritis
  147. FOSAMAX [Suspect]
     Active Substance: ALENDRONATE SODIUM
     Indication: Product used for unknown indication
  148. GOLIMUMAB [Suspect]
     Active Substance: GOLIMUMAB
     Indication: Product used for unknown indication
  149. GOLIMUMAB [Suspect]
     Active Substance: GOLIMUMAB
  150. GOLIMUMAB [Suspect]
     Active Substance: GOLIMUMAB
  151. GOLIMUMAB [Suspect]
     Active Substance: GOLIMUMAB
  152. HYRIMOZ [Suspect]
     Active Substance: ADALIMUMAB-ADAZ
     Indication: Rheumatoid arthritis
  153. HYRIMOZ [Suspect]
     Active Substance: ADALIMUMAB-ADAZ
     Indication: Psoriatic arthropathy
  154. HYRIMOZ [Suspect]
     Active Substance: ADALIMUMAB-ADAZ
     Indication: Product used for unknown indication
  155. HYRIMOZ [Suspect]
     Active Substance: ADALIMUMAB-ADAZ
     Dosage: ROA: SUBCUTANEOUS
  156. HYRIMOZ [Suspect]
     Active Substance: ADALIMUMAB-ADAZ
     Dosage: ROA: INTRAVENOUS DRIP
  157. HYRIMOZ [Suspect]
     Active Substance: ADALIMUMAB-ADAZ
     Dosage: ROA: SUBCUTANEOUS
  158. HYRIMOZ [Suspect]
     Active Substance: ADALIMUMAB-ADAZ
     Dosage: ROA: SUBCUTANEOUS
  159. HYRIMOZ [Suspect]
     Active Substance: ADALIMUMAB-ADAZ
  160. INFLIXIMAB [Suspect]
     Active Substance: INFLIXIMAB
     Indication: Rheumatoid arthritis
  161. INFLIXIMAB [Suspect]
     Active Substance: INFLIXIMAB
     Indication: Psoriatic arthropathy
  162. INFLIXIMAB [Suspect]
     Active Substance: INFLIXIMAB
  163. INFLIXIMAB [Suspect]
     Active Substance: INFLIXIMAB
     Indication: Psoriatic arthropathy
  164. INFLIXIMAB [Suspect]
     Active Substance: INFLIXIMAB
     Indication: Rheumatoid arthritis
  165. ISOPROPYL ALCOHOL [Suspect]
     Active Substance: ISOPROPYL ALCOHOL
     Indication: Product used for unknown indication
     Dosage: DOSE FORM: LIQUID TOPICAL, ROA: TOPICAL
  166. LYRICA [Suspect]
     Active Substance: PREGABALIN
     Indication: Product used for unknown indication
  167. PREDNISONE [Suspect]
     Active Substance: PREDNISONE
     Indication: Product used for unknown indication
  168. PREDNISONE [Suspect]
     Active Substance: PREDNISONE
  169. PREDNISONE [Suspect]
     Active Substance: PREDNISONE
  170. PREDNISONE [Suspect]
     Active Substance: PREDNISONE
  171. PREDNISONE [Suspect]
     Active Substance: PREDNISONE
  172. PREDNISONE [Suspect]
     Active Substance: PREDNISONE
  173. PREDNISONE [Suspect]
     Active Substance: PREDNISONE
  174. PREDNISONE [Suspect]
     Active Substance: PREDNISONE
  175. PREDNISONE [Suspect]
     Active Substance: PREDNISONE
  176. PREDNISONE [Suspect]
     Active Substance: PREDNISONE
  177. PREDNISONE [Suspect]
     Active Substance: PREDNISONE
     Dosage: ROA: SUBCUTANEOUS
  178. PREDNISONE [Suspect]
     Active Substance: PREDNISONE
  179. PREDNISONE [Suspect]
     Active Substance: PREDNISONE
  180. PREDNISONE [Suspect]
     Active Substance: PREDNISONE
  181. PREDNISONE [Suspect]
     Active Substance: PREDNISONE
  182. PREDNISONE [Suspect]
     Active Substance: PREDNISONE
  183. PREDNISONE [Suspect]
     Active Substance: PREDNISONE
  184. PREDNISONE [Suspect]
     Active Substance: PREDNISONE
  185. PREDNISONE [Suspect]
     Active Substance: PREDNISONE
  186. PREDNISONE [Suspect]
     Active Substance: PREDNISONE
     Indication: Product used for unknown indication
  187. PSEUDOEPHEDRINE HYDROCHLORIDE [Suspect]
     Active Substance: PSEUDOEPHEDRINE HYDROCHLORIDE
     Indication: Rheumatoid arthritis
  188. PSEUDOEPHEDRINE HYDROCHLORIDE [Suspect]
     Active Substance: PSEUDOEPHEDRINE HYDROCHLORIDE
     Indication: Product used for unknown indication
  189. CETIRIZINE HYDROCHLORIDE [Suspect]
     Active Substance: CETIRIZINE HYDROCHLORIDE
     Indication: Urticaria
  190. CETIRIZINE HYDROCHLORIDE [Suspect]
     Active Substance: CETIRIZINE HYDROCHLORIDE
     Indication: Rheumatoid arthritis
  191. CETIRIZINE HYDROCHLORIDE [Suspect]
     Active Substance: CETIRIZINE HYDROCHLORIDE
  192. CETIRIZINE HYDROCHLORIDE [Suspect]
     Active Substance: CETIRIZINE HYDROCHLORIDE
  193. CETIRIZINE HYDROCHLORIDE [Suspect]
     Active Substance: CETIRIZINE HYDROCHLORIDE
  194. CETIRIZINE HYDROCHLORIDE\PSEUDOEPHEDRINE HYDROCHLORIDE [Suspect]
     Active Substance: CETIRIZINE HYDROCHLORIDE\PSEUDOEPHEDRINE HYDROCHLORIDE
     Indication: Rheumatoid arthritis
  195. CETIRIZINE HYDROCHLORIDE\PSEUDOEPHEDRINE HYDROCHLORIDE [Suspect]
     Active Substance: CETIRIZINE HYDROCHLORIDE\PSEUDOEPHEDRINE HYDROCHLORIDE
  196. CETIRIZINE HYDROCHLORIDE\PSEUDOEPHEDRINE HYDROCHLORIDE [Suspect]
     Active Substance: CETIRIZINE HYDROCHLORIDE\PSEUDOEPHEDRINE HYDROCHLORIDE
     Indication: Rheumatoid arthritis
     Dosage: TABLET (EXTENDED- RELEASE)
  197. REMICADE [Suspect]
     Active Substance: INFLIXIMAB
     Indication: Product used for unknown indication
  198. REMICADE [Suspect]
     Active Substance: INFLIXIMAB
  199. REMICADE [Suspect]
     Active Substance: INFLIXIMAB
  200. REMICADE [Suspect]
     Active Substance: INFLIXIMAB
  201. REMICADE [Suspect]
     Active Substance: INFLIXIMAB
  202. REMICADE [Suspect]
     Active Substance: INFLIXIMAB
  203. REMICADE [Suspect]
     Active Substance: INFLIXIMAB
  204. REMICADE [Suspect]
     Active Substance: INFLIXIMAB
  205. REMICADE [Suspect]
     Active Substance: INFLIXIMAB
  206. REMICADE [Suspect]
     Active Substance: INFLIXIMAB
  207. REMICADE [Suspect]
     Active Substance: INFLIXIMAB
  208. REMICADE [Suspect]
     Active Substance: INFLIXIMAB
  209. REMICADE [Suspect]
     Active Substance: INFLIXIMAB
     Dosage: ROA: SUBCUTANEOUS
  210. REMICADE [Suspect]
     Active Substance: INFLIXIMAB
  211. REMICADE [Suspect]
     Active Substance: INFLIXIMAB
  212. REMICADE [Suspect]
     Active Substance: INFLIXIMAB
  213. REMICADE [Suspect]
     Active Substance: INFLIXIMAB
  214. REMICADE [Suspect]
     Active Substance: INFLIXIMAB
     Indication: Product used for unknown indication
     Dosage: DOSE FORM: POWDER FOR SOLUTION INTRAVENOUS
  215. RITUXIMAB [Suspect]
     Active Substance: RITUXIMAB
     Indication: Rheumatoid arthritis
  216. RITUXIMAB [Suspect]
     Active Substance: RITUXIMAB
     Indication: Product used for unknown indication
  217. RITUXIMAB [Suspect]
     Active Substance: RITUXIMAB
  218. RITUXIMAB [Suspect]
     Active Substance: RITUXIMAB
     Dosage: ROA: INTRAVENOUS DRIP
  219. RITUXIMAB [Suspect]
     Active Substance: RITUXIMAB
     Dosage: ROA: INTRAVENOUS DRIP
  220. RITUXIMAB [Suspect]
     Active Substance: RITUXIMAB
     Dosage: ROA: INTRAVENOUS DRIP
  221. RITUXIMAB [Suspect]
     Active Substance: RITUXIMAB
     Dosage: ROA: SUBCUTANEOUS
  222. RITUXIMAB [Suspect]
     Active Substance: RITUXIMAB
     Dosage: ROA: SUBCUTANEOUS
  223. RITUXIMAB [Suspect]
     Active Substance: RITUXIMAB
  224. RITUXIMAB [Suspect]
     Active Substance: RITUXIMAB
  225. RITUXIMAB [Suspect]
     Active Substance: RITUXIMAB
  226. RITUXIMAB [Suspect]
     Active Substance: RITUXIMAB
  227. RITUXIMAB [Suspect]
     Active Substance: RITUXIMAB
  228. RITUXIMAB [Suspect]
     Active Substance: RITUXIMAB
     Indication: Product used for unknown indication
  229. RITUXIMAB [Suspect]
     Active Substance: RITUXIMAB
     Indication: Rheumatoid arthritis
  230. APREMILAST [Suspect]
     Active Substance: APREMILAST
     Indication: Product used for unknown indication
  231. APREMILAST [Suspect]
     Active Substance: APREMILAST
  232. APREMILAST [Suspect]
     Active Substance: APREMILAST
  233. APREMILAST [Suspect]
     Active Substance: APREMILAST
     Indication: Product used for unknown indication
  234. HYDROCORTISONE [Suspect]
     Active Substance: HYDROCORTISONE
     Indication: Rheumatoid arthritis
  235. HYDROCORTISONE [Suspect]
     Active Substance: HYDROCORTISONE
  236. HYDROCORTISONE [Suspect]
     Active Substance: HYDROCORTISONE
  237. HYDROCORTISONE [Suspect]
     Active Substance: HYDROCORTISONE
  238. HYDROCORTISONE [Suspect]
     Active Substance: HYDROCORTISONE
  239. HYDROCORTISONE [Suspect]
     Active Substance: HYDROCORTISONE
  240. HYDROCORTISONE [Suspect]
     Active Substance: HYDROCORTISONE
  241. HYDROCORTISONE [Suspect]
     Active Substance: HYDROCORTISONE
  242. HYDROCORTISONE [Suspect]
     Active Substance: HYDROCORTISONE
  243. HYDROCORTISONE [Suspect]
     Active Substance: HYDROCORTISONE
  244. HYDROCORTISONE [Suspect]
     Active Substance: HYDROCORTISONE
  245. HYDROCORTISONE [Suspect]
     Active Substance: HYDROCORTISONE
  246. HYDROCORTISONE [Suspect]
     Active Substance: HYDROCORTISONE
     Dosage: ROA: SUBCUTANEOUS
  247. HYDROCORTISONE [Suspect]
     Active Substance: HYDROCORTISONE
     Dosage: ROA: TOPICAL
  248. HYDROCORTISONE [Suspect]
     Active Substance: HYDROCORTISONE
     Dosage: ROA: TOPICAL
  249. HYDROCORTISONE [Suspect]
     Active Substance: HYDROCORTISONE
     Dosage: ROA: OTHER
  250. HYDROCORTISONE [Suspect]
     Active Substance: HYDROCORTISONE
  251. HYDROCORTISONE [Suspect]
     Active Substance: HYDROCORTISONE
     Indication: Rheumatoid arthritis
  252. LEFLUNOMIDE [Suspect]
     Active Substance: LEFLUNOMIDE
     Indication: Rheumatoid arthritis
  253. LEFLUNOMIDE [Suspect]
     Active Substance: LEFLUNOMIDE
  254. LEFLUNOMIDE [Suspect]
     Active Substance: LEFLUNOMIDE
  255. LEFLUNOMIDE [Suspect]
     Active Substance: LEFLUNOMIDE
     Indication: Rheumatoid arthritis
  256. MOXIFLOXACIN HYDROCHLORIDE [Suspect]
     Active Substance: MOXIFLOXACIN HYDROCHLORIDE
     Indication: Product used for unknown indication
     Dosage: DOSE FORM: SOLUTION OPHTHALMIC, ROA: SUBCUTANEOUS
  257. MYCOPHENOLATE MOFETIL [Suspect]
     Active Substance: MYCOPHENOLATE MOFETIL
     Indication: Rheumatoid arthritis
  258. PANTOPRAZOLE SODIUM [Suspect]
     Active Substance: PANTOPRAZOLE SODIUM
     Indication: Product used for unknown indication
  259. PANTOPRAZOLE SODIUM [Suspect]
     Active Substance: PANTOPRAZOLE SODIUM
     Indication: Product used for unknown indication
     Dosage: TABLET (DELAYED- RELEASE)
  260. PREGABALIN [Suspect]
     Active Substance: PREGABALIN
     Indication: Product used for unknown indication
  261. SIMPONI [Suspect]
     Active Substance: GOLIMUMAB
     Indication: Rheumatoid arthritis
  262. SIMPONI [Suspect]
     Active Substance: GOLIMUMAB
     Indication: Psoriatic arthropathy
     Dosage: ROA: SUBCUTANEOUS
  263. SIMPONI [Suspect]
     Active Substance: GOLIMUMAB
     Indication: Psoriatic arthropathy
     Dosage: DOSE FORM: SOLUTION SUBCUTANEOUS
  264. SIMPONI [Suspect]
     Active Substance: GOLIMUMAB
     Indication: Rheumatoid arthritis
  265. STELARA [Suspect]
     Active Substance: USTEKINUMAB
     Indication: Rheumatoid arthritis
     Dosage: ROA: SUBCUTANEOUS
  266. STELARA [Suspect]
     Active Substance: USTEKINUMAB
     Dosage: ROA: SUBCUTANEOUS
  267. STELARA [Suspect]
     Active Substance: USTEKINUMAB
     Dosage: ROA: SUBCUTANEOUS
  268. STELARA [Suspect]
     Active Substance: USTEKINUMAB
  269. SULFAMETHOXAZOLE\TRIMETHOPRIM [Suspect]
     Active Substance: SULFAMETHOXAZOLE\TRIMETHOPRIM
     Indication: Product used for unknown indication
  270. SULFAMETHOXAZOLE\TRIMETHOPRIM [Suspect]
     Active Substance: SULFAMETHOXAZOLE\TRIMETHOPRIM
  271. SULFAMETHOXAZOLE\TRIMETHOPRIM [Suspect]
     Active Substance: SULFAMETHOXAZOLE\TRIMETHOPRIM
  272. SULFAMETHOXAZOLE\TRIMETHOPRIM [Suspect]
     Active Substance: SULFAMETHOXAZOLE\TRIMETHOPRIM
  273. SULFAMETHOXAZOLE\TRIMETHOPRIM [Suspect]
     Active Substance: SULFAMETHOXAZOLE\TRIMETHOPRIM
  274. SULFAMETHOXAZOLE\TRIMETHOPRIM [Suspect]
     Active Substance: SULFAMETHOXAZOLE\TRIMETHOPRIM
  275. SULFAMETHOXAZOLE\TRIMETHOPRIM [Suspect]
     Active Substance: SULFAMETHOXAZOLE\TRIMETHOPRIM
  276. SULFAMETHOXAZOLE\TRIMETHOPRIM [Suspect]
     Active Substance: SULFAMETHOXAZOLE\TRIMETHOPRIM
  277. SULFAMETHOXAZOLE\TRIMETHOPRIM [Suspect]
     Active Substance: SULFAMETHOXAZOLE\TRIMETHOPRIM
  278. SULFAMETHOXAZOLE\TRIMETHOPRIM [Suspect]
     Active Substance: SULFAMETHOXAZOLE\TRIMETHOPRIM
  279. SULFAMETHOXAZOLE\TRIMETHOPRIM [Suspect]
     Active Substance: SULFAMETHOXAZOLE\TRIMETHOPRIM
  280. SULFASALAZINE [Suspect]
     Active Substance: SULFASALAZINE
     Indication: Rheumatoid arthritis
  281. SULFASALAZINE [Suspect]
     Active Substance: SULFASALAZINE
  282. SULFASALAZINE [Suspect]
     Active Substance: SULFASALAZINE
  283. SULFASALAZINE [Suspect]
     Active Substance: SULFASALAZINE
  284. SULFASALAZINE [Suspect]
     Active Substance: SULFASALAZINE
  285. SULFASALAZINE [Suspect]
     Active Substance: SULFASALAZINE
  286. SULFASALAZINE [Suspect]
     Active Substance: SULFASALAZINE
  287. SULFASALAZINE [Suspect]
     Active Substance: SULFASALAZINE
  288. SULFASALAZINE [Suspect]
     Active Substance: SULFASALAZINE
  289. SULFASALAZINE [Suspect]
     Active Substance: SULFASALAZINE
  290. SULFASALAZINE [Suspect]
     Active Substance: SULFASALAZINE
  291. SULFASALAZINE [Suspect]
     Active Substance: SULFASALAZINE
  292. SULFASALAZINE [Suspect]
     Active Substance: SULFASALAZINE
  293. SULFASALAZINE [Suspect]
     Active Substance: SULFASALAZINE
  294. SULFASALAZINE [Suspect]
     Active Substance: SULFASALAZINE
  295. SULFASALAZINE [Suspect]
     Active Substance: SULFASALAZINE
  296. SULFATRIM [Suspect]
     Active Substance: SULFAMETHOXAZOLE\TRIMETHOPRIM
     Indication: Product used for unknown indication
  297. TRIAMCINOLONE ACETONIDE [Suspect]
     Active Substance: TRIAMCINOLONE ACETONIDE
     Indication: Rheumatoid arthritis
     Dosage: DOSE FORM: SUSPENSION INTRA- ARTICULAR
  298. VITAMIN C [Suspect]
     Active Substance: ASCORBIC ACID
     Indication: Product used for unknown indication
  299. VITAMIN C [Suspect]
     Active Substance: ASCORBIC ACID
  300. VITAMIN D3 [Suspect]
     Active Substance: CHOLECALCIFEROL
     Indication: Rheumatoid arthritis
  301. PREDNISONE [Suspect]
     Active Substance: PREDNISONE
     Indication: Rheumatoid arthritis
  302. XELJANZ [Suspect]
     Active Substance: TOFACITINIB CITRATE
     Indication: Product used for unknown indication
  303. XELJANZ [Suspect]
     Active Substance: TOFACITINIB CITRATE
  304. XELJANZ [Suspect]
     Active Substance: TOFACITINIB CITRATE
  305. DICLOFENAC [Suspect]
     Active Substance: DICLOFENAC
     Indication: Product used for unknown indication
  306. DICLOFENAC SODIUM [Suspect]
     Active Substance: DICLOFENAC SODIUM
     Indication: Systemic lupus erythematosus
  307. DICLOFENAC SODIUM [Suspect]
     Active Substance: DICLOFENAC SODIUM
     Indication: Synovitis
  308. DICLOFENAC SODIUM [Suspect]
     Active Substance: DICLOFENAC SODIUM
     Indication: Rheumatoid arthritis
     Dosage: ROA: OPTHALMIC
  309. DICLOFENAC SODIUM [Suspect]
     Active Substance: DICLOFENAC SODIUM
     Indication: Psoriatic arthropathy
  310. DICLOFENAC SODIUM [Suspect]
     Active Substance: DICLOFENAC SODIUM
     Indication: Pemphigus
  311. DICLOFENAC SODIUM [Suspect]
     Active Substance: DICLOFENAC SODIUM
     Indication: Inflammation
  312. DICLOFENAC SODIUM [Suspect]
     Active Substance: DICLOFENAC SODIUM
     Indication: Bursitis
  313. ACETAMINOPHEN [Suspect]
     Active Substance: ACETAMINOPHEN
     Indication: Rheumatoid arthritis
  314. ACETAMINOPHEN [Suspect]
     Active Substance: ACETAMINOPHEN
     Indication: Pyrexia
  315. ACETAMINOPHEN [Suspect]
     Active Substance: ACETAMINOPHEN
     Indication: Pain
  316. ACTEMRA [Suspect]
     Active Substance: TOCILIZUMAB
     Indication: Rheumatoid arthritis
  317. ACTEMRA [Suspect]
     Active Substance: TOCILIZUMAB
  318. ACTEMRA [Suspect]
     Active Substance: TOCILIZUMAB
  319. ACTEMRA [Suspect]
     Active Substance: TOCILIZUMAB
  320. ACTEMRA [Suspect]
     Active Substance: TOCILIZUMAB
  321. ACTEMRA [Suspect]
     Active Substance: TOCILIZUMAB
  322. ACTEMRA [Suspect]
     Active Substance: TOCILIZUMAB
  323. ACTEMRA [Suspect]
     Active Substance: TOCILIZUMAB
     Dosage: ROA: SUBCUTANEOUS
  324. ACTEMRA [Suspect]
     Active Substance: TOCILIZUMAB
     Dosage: ROA: SUBCUTANEOUS
  325. ACTEMRA [Suspect]
     Active Substance: TOCILIZUMAB
     Dosage: ROA: SUBCUTANEOUS
  326. ACTEMRA [Suspect]
     Active Substance: TOCILIZUMAB
     Dosage: ROA: SUBCUTANEOUS
  327. ACTEMRA [Suspect]
     Active Substance: TOCILIZUMAB
     Dosage: ROA: TOPICAL
  328. ACTEMRA [Suspect]
     Active Substance: TOCILIZUMAB
  329. CORTISONE [Suspect]
     Active Substance: CORTISONE
     Indication: Rheumatoid arthritis
  330. CORTISONE [Suspect]
     Active Substance: CORTISONE
  331. CORTISONE [Suspect]
     Active Substance: CORTISONE
  332. CORTISONE [Suspect]
     Active Substance: CORTISONE
  333. CORTISONE [Suspect]
     Active Substance: CORTISONE
  334. CORTISONE [Suspect]
     Active Substance: CORTISONE
     Indication: Rheumatoid arthritis
  335. HUMIRA [Suspect]
     Active Substance: ADALIMUMAB
     Indication: Rheumatoid arthritis
  336. HUMIRA [Suspect]
     Active Substance: ADALIMUMAB
     Indication: Psoriatic arthropathy
  337. HUMIRA [Suspect]
     Active Substance: ADALIMUMAB
  338. HUMIRA [Suspect]
     Active Substance: ADALIMUMAB
  339. HUMIRA [Suspect]
     Active Substance: ADALIMUMAB
  340. HUMIRA [Suspect]
     Active Substance: ADALIMUMAB
     Indication: Rheumatoid arthritis
     Dosage: DOSE FORM: SOLUTION SUBCUTANEOUS
  341. HUMIRA [Suspect]
     Active Substance: ADALIMUMAB
     Indication: Psoriatic arthropathy
  342. HYDROCORTISONE [Suspect]
     Active Substance: HYDROCORTISONE
     Indication: Product used for unknown indication
  343. HYDROCORTISONE BUTYRATE [Suspect]
     Active Substance: HYDROCORTISONE BUTYRATE
     Indication: Product used for unknown indication
     Dosage: ROA: SUBCUTANEOUS
  344. HYDROCORTISONE SODIUM SUCCINATE [Suspect]
     Active Substance: HYDROCORTISONE SODIUM SUCCINATE
     Indication: Product used for unknown indication
  345. HYDROCORTISONE SODIUM SUCCINATE [Suspect]
     Active Substance: HYDROCORTISONE SODIUM SUCCINATE
     Dosage: ROA: TOPICAL
  346. HYDROCORTISONE SODIUM SUCCINATE [Suspect]
     Active Substance: HYDROCORTISONE SODIUM SUCCINATE
  347. HYDROCORTISONE SODIUM SUCCINATE [Suspect]
     Active Substance: HYDROCORTISONE SODIUM SUCCINATE
  348. HYDROCORTISONE SODIUM SUCCINATE [Suspect]
     Active Substance: HYDROCORTISONE SODIUM SUCCINATE
     Dosage: ROA: SUBCUTANEOUS
  349. HYDROCORTISONE SODIUM SUCCINATE [Suspect]
     Active Substance: HYDROCORTISONE SODIUM SUCCINATE
     Dosage: ROA: SUBCUTANEOUS
  350. HYDROCORTISONE SODIUM SUCCINATE [Suspect]
     Active Substance: HYDROCORTISONE SODIUM SUCCINATE
     Dosage: ROA: CUTANEOUS
  351. HYDROCORTISONE SODIUM SUCCINATE [Suspect]
     Active Substance: HYDROCORTISONE SODIUM SUCCINATE
     Indication: Product used for unknown indication
     Dosage: ROA: POWDER FOR SOLUTION
  352. HYDROXYCHLOROQUINE [Suspect]
     Active Substance: HYDROXYCHLOROQUINE
     Indication: Product used for unknown indication
  353. METHOTREXATE [Suspect]
     Active Substance: METHOTREXATE
     Indication: Rheumatoid arthritis
  354. METHOTREXATE [Suspect]
     Active Substance: METHOTREXATE
  355. METHOTREXATE [Suspect]
     Active Substance: METHOTREXATE
  356. METHOTREXATE [Suspect]
     Active Substance: METHOTREXATE
  357. METHOTREXATE [Suspect]
     Active Substance: METHOTREXATE
  358. METHOTREXATE [Suspect]
     Active Substance: METHOTREXATE
  359. METHOTREXATE [Suspect]
     Active Substance: METHOTREXATE
  360. METHOTREXATE [Suspect]
     Active Substance: METHOTREXATE
  361. METHOTREXATE [Suspect]
     Active Substance: METHOTREXATE
  362. METHOTREXATE [Suspect]
     Active Substance: METHOTREXATE
  363. METHOTREXATE [Suspect]
     Active Substance: METHOTREXATE
  364. METHOTREXATE [Suspect]
     Active Substance: METHOTREXATE
  365. METHOTREXATE [Suspect]
     Active Substance: METHOTREXATE
  366. METHOTREXATE [Suspect]
     Active Substance: METHOTREXATE
     Dosage: ROA: SUBCUTANEOUS
  367. METHOTREXATE [Suspect]
     Active Substance: METHOTREXATE
     Dosage: ROA: SUBCUTANEOUS
  368. METHOTREXATE [Suspect]
     Active Substance: METHOTREXATE
     Dosage: ROA: SUBCUTANEOUS
  369. METHOTREXATE [Suspect]
     Active Substance: METHOTREXATE
     Indication: Rheumatoid arthritis
  370. NAPROXEN SODIUM [Suspect]
     Active Substance: NAPROXEN SODIUM
     Indication: Rheumatoid arthritis
  371. NAPROXEN SODIUM [Suspect]
     Active Substance: NAPROXEN SODIUM
  372. ORENCIA [Suspect]
     Active Substance: ABATACEPT
     Indication: Rheumatoid arthritis
     Dosage: ROA: SUBCUTANEOUS
  373. ORENCIA [Suspect]
     Active Substance: ABATACEPT
     Indication: Psoriatic arthropathy
     Dosage: ROA: SUBCUTANEOUS
  374. ORENCIA [Suspect]
     Active Substance: ABATACEPT
     Dosage: ROA: SUBCUTANEOUS
  375. ORENCIA [Suspect]
     Active Substance: ABATACEPT
     Dosage: ROA: SUBCUTANEOUS
  376. ORENCIA [Suspect]
     Active Substance: ABATACEPT
     Dosage: ROA: SUBCUTANEOUS
  377. ORENCIA [Suspect]
     Active Substance: ABATACEPT
     Dosage: ROA: SUBCUTANEOUS
  378. ORENCIA [Suspect]
     Active Substance: ABATACEPT
     Dosage: ROA: INTRAVENOUS DRIP
  379. ORENCIA [Suspect]
     Active Substance: ABATACEPT
     Dosage: ROA: INTRAVENOUS DRIP
  380. ORENCIA [Suspect]
     Active Substance: ABATACEPT
  381. ORENCIA [Suspect]
     Active Substance: ABATACEPT
  382. ORENCIA [Suspect]
     Active Substance: ABATACEPT
  383. ORENCIA [Suspect]
     Active Substance: ABATACEPT
  384. ORENCIA [Suspect]
     Active Substance: ABATACEPT
  385. ORENCIA [Suspect]
     Active Substance: ABATACEPT
     Indication: Rheumatoid arthritis
     Dosage: ROA: SUBCUTANEOUS
  386. ORENCIA [Suspect]
     Active Substance: ABATACEPT
     Indication: Psoriatic arthropathy
  387. OTEZLA [Suspect]
     Active Substance: APREMILAST
     Indication: Product used for unknown indication
  388. OTEZLA [Suspect]
     Active Substance: APREMILAST
  389. OXYCODONE [Suspect]
     Active Substance: OXYCODONE
     Indication: Product used for unknown indication
  390. OXYCODONE HYDROCHLORIDE [Suspect]
     Active Substance: OXYCODONE HYDROCHLORIDE
     Indication: Product used for unknown indication
  391. OXYCODONE TEREPHTHALATE [Suspect]
     Active Substance: OXYCODONE TEREPHTHALATE
     Indication: Product used for unknown indication
  392. PERIOGARD [Suspect]
     Active Substance: CHLORHEXIDINE GLUCONATE
     Indication: Product used for unknown indication
  393. PERIOGARD [Suspect]
     Active Substance: CHLORHEXIDINE GLUCONATE
  394. PERIOGARD [Suspect]
     Active Substance: CHLORHEXIDINE GLUCONATE
  395. PHTHALYLSULFATHIAZOLE [Suspect]
     Active Substance: PHTHALYLSULFATHIAZOLE
     Indication: Product used for unknown indication
  396. PREDNISOLONE [Suspect]
     Active Substance: PREDNISOLONE
     Indication: Systemic lupus erythematosus
  397. PREDNISOLONE [Suspect]
     Active Substance: PREDNISOLONE
     Indication: Synovitis
  398. PREDNISOLONE [Suspect]
     Active Substance: PREDNISOLONE
     Indication: Rheumatoid arthritis
  399. PREDNISOLONE [Suspect]
     Active Substance: PREDNISOLONE
     Indication: Psoriatic arthropathy
  400. PREDNISOLONE [Suspect]
     Active Substance: PREDNISOLONE
     Indication: Product used for unknown indication
  401. PREDNISOLONE [Suspect]
     Active Substance: PREDNISOLONE
     Indication: Pemphigus
  402. PREDNISOLONE [Suspect]
     Active Substance: PREDNISOLONE
     Indication: Condition aggravated
  403. PREDNISOLONE [Suspect]
     Active Substance: PREDNISOLONE
  404. PREDNISOLONE [Suspect]
     Active Substance: PREDNISOLONE
  405. PREDNISOLONE [Suspect]
     Active Substance: PREDNISOLONE
  406. STELARA [Suspect]
     Active Substance: USTEKINUMAB
     Indication: Rheumatoid arthritis
     Dosage: SOLUTION SUBCUTANEOUS
  407. SULFAMETHOXAZOLE [Suspect]
     Active Substance: SULFAMETHOXAZOLE
     Indication: Product used for unknown indication
  408. VOLTAREN [Suspect]
     Active Substance: DICLOFENAC SODIUM
     Indication: Product used for unknown indication
  409. VOLTAREN [Suspect]
     Active Substance: DICLOFENAC SODIUM
  410. VOLTAREN [Suspect]
     Active Substance: DICLOFENAC SODIUM
  411. VOLTAREN [Suspect]
     Active Substance: DICLOFENAC SODIUM
  412. VOLTAREN [Suspect]
     Active Substance: DICLOFENAC SODIUM
  413. VOLTAREN [Suspect]
     Active Substance: DICLOFENAC SODIUM
  414. VOLTAREN [Suspect]
     Active Substance: DICLOFENAC SODIUM
  415. VOLTAREN [Suspect]
     Active Substance: DICLOFENAC SODIUM
     Dosage: ROA: OPTHALMIC
  416. VOLTAREN [Suspect]
     Active Substance: DICLOFENAC SODIUM
     Dosage: ROA: OPTHALMIC

REACTIONS (19)
  - Duodenal ulcer perforation [Fatal]
  - Confusional state [Fatal]
  - Fatigue [Fatal]
  - Folliculitis [Fatal]
  - Gastrointestinal disorder [Fatal]
  - Hand deformity [Fatal]
  - Infection [Fatal]
  - Infusion related reaction [Fatal]
  - Irritable bowel syndrome [Fatal]
  - Lower respiratory tract infection [Fatal]
  - Muscle injury [Fatal]
  - Nasopharyngitis [Fatal]
  - Pain [Fatal]
  - Pemphigus [Fatal]
  - Pyrexia [Fatal]
  - Anti-cyclic citrullinated peptide antibody positive [Fatal]
  - Glossodynia [Fatal]
  - Helicobacter infection [Fatal]
  - Pericarditis [Fatal]
